FAERS Safety Report 25337782 (Version 1)
Quarter: 2025Q2

REPORT INFORMATION
  Report Type: Report from Study
  Country: US (occurrence: US)
  Receive Date: 20250520
  Receipt Date: 20250520
  Transmission Date: 20250717
  Serious: Yes (Life-Threatening, Hospitalization, Other)
  Sender: PFIZER
  Company Number: US-PFIZER INC-PV202500042202

PATIENT
  Age: 55 Year
  Sex: Female

DRUGS (2)
  1. LORBRENA [Suspect]
     Active Substance: LORLATINIB
     Indication: Lung neoplasm malignant
     Dosage: 100 MG, 1X/DAY
     Route: 048
     Dates: start: 202503
  2. LORBRENA [Suspect]
     Active Substance: LORLATINIB
     Indication: Brain neoplasm malignant
     Dosage: 100 MG, 1X/DAY
     Route: 048

REACTIONS (5)
  - Suicide attempt [Unknown]
  - Hallucination [Not Recovered/Not Resolved]
  - Therapeutic response unexpected [Unknown]
  - Blood pressure decreased [Unknown]
  - Throat lesion [Not Recovered/Not Resolved]

NARRATIVE: CASE EVENT DATE: 20250101
